FAERS Safety Report 5311316-9 (Version None)
Quarter: 2007Q2

REPORT INFORMATION
  Report Type: 
  Country: None (occurrence: None)
  Receive Date: 20070430
  Receipt Date: 20070417
  Transmission Date: 20071010
  Serious: Yes (Hospitalization)
  Sender: FDA-Public Use
  Company Number: PHBS2007US06733

PATIENT
  Age: 43 Year
  Sex: Male

DRUGS (8)
  1. OLANZAPINE [Concomitant]
     Dosage: 10 MG, QHS
     Route: 048
  2. PERPHENAZINE [Concomitant]
     Dates: end: 20020101
  3. VALPROATE SODIUM [Concomitant]
     Dosage: 500 MG, BID
     Route: 048
  4. ATENOLOL [Concomitant]
  5. RANITIDINE [Concomitant]
  6. ACETYLSALICYLIC ACID SRT [Concomitant]
  7. CLOZAPINE [Suspect]
     Indication: SCHIZOPHRENIA, PARANOID TYPE
     Dosage: 300 MG, BID
     Route: 048
     Dates: end: 20020101
  8. CLOZAPINE [Suspect]
     Dosage: 550 MG/D
     Route: 048
     Dates: start: 20030301

REACTIONS (4)
  - LEUKOCYTOSIS [None]
  - MONOCYTE COUNT INCREASED [None]
  - NEUTROPHIL COUNT INCREASED [None]
  - WHITE BLOOD CELL COUNT INCREASED [None]
